FAERS Safety Report 8919867 (Version 1)
Quarter: 2012Q4

REPORT INFORMATION
  Report Type: 
  Country: US (occurrence: US)
  Receive Date: 20121121
  Receipt Date: 20121121
  Transmission Date: 20130627
  Serious: No
  Sender: FDA-Public Use
  Company Number: US-009507513-1211USA008124

PATIENT
  Age: 17 Year
  Sex: Female

DRUGS (1)
  1. CLARITIN [Suspect]
     Indication: PRODUCT USED FOR UNKNOWN INDICATION
     Dosage: 30 mg, Once
     Dates: start: 20120922

REACTIONS (1)
  - Overdose [Unknown]
